FAERS Safety Report 15679656 (Version 2)
Quarter: 2018Q4

REPORT INFORMATION
  Report Type: Spontaneous
  Country: US (occurrence: US)
  Receive Date: 20181203
  Receipt Date: 20181212
  Transmission Date: 20190205
  Serious: Yes (Other)
  Sender: FDA-Public Use
  Company Number: US-HORIZON-DUE-0681-2018

PATIENT
  Age: 52 Year
  Sex: Female

DRUGS (1)
  1. DUEXIS [Suspect]
     Active Substance: FAMOTIDINE\IBUPROFEN
     Indication: LIGAMENT RUPTURE
     Dates: start: 20180927

REACTIONS (5)
  - Off label use [Unknown]
  - Therapy cessation [Unknown]
  - Insurance issue [Unknown]
  - Procedural pain [Unknown]
  - Surgery [Recovering/Resolving]
